FAERS Safety Report 18784711 (Version 1)
Quarter: 2021Q1

REPORT INFORMATION
  Report Type: Report from Study
  Country: US (occurrence: US)
  Receive Date: 20210125
  Receipt Date: 20210125
  Transmission Date: 20210419
  Serious: Yes (Other)
  Sender: FDA-Public Use
  Company Number: US-THERAPEUTICSMD-2021TMD00074

PATIENT
  Age: 66 Year
  Sex: Female
  Weight: 65.76 kg

DRUGS (8)
  1. IMVEXXY [Suspect]
     Active Substance: ESTRADIOL
     Dosage: 10 ?G, 2X/WEEK BEFORE BED
     Route: 067
     Dates: end: 202002
  2. PAXIL [Concomitant]
     Active Substance: PAROXETINE HYDROCHLORIDE
  3. CALCIUM [Concomitant]
     Active Substance: CALCIUM
  4. IMVEXXY [Suspect]
     Active Substance: ESTRADIOL
     Dosage: 10 ?G, 1X/DAY BEFORE BED
     Route: 067
  5. MAGNESIUM [Concomitant]
     Active Substance: MAGNESIUM
  6. IMVEXXY [Suspect]
     Active Substance: ESTRADIOL
     Indication: VULVOVAGINAL DRYNESS
     Dosage: 10 ?G, 2X/WEEK BEFORE BED
     Route: 067
     Dates: start: 2020
  7. THYROID MEDICATION [Concomitant]
     Active Substance: UNSPECIFIED INGREDIENT
  8. VITAMIN D [Concomitant]
     Active Substance: VITAMIN D NOS

REACTIONS (5)
  - Uterine disorder [Unknown]
  - Off label use [Not Recovered/Not Resolved]
  - Sinusitis [Recovering/Resolving]
  - Hysterectomy [Unknown]
  - Contraindicated product administered [Not Recovered/Not Resolved]

NARRATIVE: CASE EVENT DATE: 202002
